FAERS Safety Report 20298698 (Version 1)
Quarter: 2022Q1

REPORT INFORMATION
  Report Type: Spontaneous
  Country: US (occurrence: US)
  Receive Date: 20220105
  Receipt Date: 20220105
  Transmission Date: 20220424
  Serious: No
  Sender: FDA-Public Use
  Company Number: US-BAUSCH-BL-2022-000154

PATIENT
  Sex: Female

DRUGS (7)
  1. XIFAXAN [Suspect]
     Active Substance: RIFAXIMIN
     Indication: Gastrointestinal bacterial overgrowth
     Route: 048
  2. XIFAXAN [Suspect]
     Active Substance: RIFAXIMIN
     Indication: Irritable bowel syndrome
  3. UNSPECIFIED IRON VITAMIN [Concomitant]
     Indication: Product used for unknown indication
  4. UNSPECIFIED ZINC VITAMIN [Concomitant]
     Indication: Product used for unknown indication
  5. UNSPECIFIED B COMPLEX VITAMIN [Concomitant]
     Indication: Product used for unknown indication
  6. UNSPECIFIED FISH OIL VITAMIN [Concomitant]
     Indication: Product used for unknown indication
  7. UNSPECIFIED VITAMIN D [Concomitant]
     Indication: Product used for unknown indication

REACTIONS (3)
  - Bowel movement irregularity [Unknown]
  - Diarrhoea [Unknown]
  - Abnormal faeces [Unknown]
